FAERS Safety Report 21117744 (Version 1)
Quarter: 2022Q3

REPORT INFORMATION
  Report Type: Spontaneous
  Country: GB (occurrence: GB)
  Receive Date: 20220722
  Receipt Date: 20220722
  Transmission Date: 20221027
  Serious: Yes (Hospitalization)
  Sender: FDA-Public Use
  Company Number: None

PATIENT
  Sex: Male

DRUGS (1)
  1. WARFARIN [Suspect]
     Active Substance: WARFARIN
     Indication: Product used for unknown indication
     Dosage: 2 MILLIGRAM DAILY; UNIT DOSE : 2 MG , FREQUENCY : 1 , FREQUENCY TIME : 1 DAYS, STRENGTH: 1 MG
     Route: 048

REACTIONS (1)
  - Epistaxis [Recovered/Resolved]
